FAERS Safety Report 5803301-5 (Version None)
Quarter: 2008Q3

REPORT INFORMATION
  Report Type: 
  Country: None (occurrence: None)
  Receive Date: 20080708
  Receipt Date: 20080704
  Transmission Date: 20090109
  Serious: Yes (Hospitalization)
  Sender: FDA-Public Use
  Company Number: B0525153A

PATIENT
  Age: 64 Year
  Sex: Female

DRUGS (5)
  1. ZANTAC [Suspect]
     Indication: PREMEDICATION
     Dosage: 50MG PER DAY
     Route: 042
     Dates: start: 20080514, end: 20080514
  2. ZANTAC [Suspect]
     Dosage: 50MG PER DAY
     Route: 065
     Dates: start: 20080618, end: 20080618
  3. DEXAMETHASONE SODIUM PHOSPHATE [Concomitant]
     Indication: PREMEDICATION
     Dosage: 12MG PER DAY
  4. RESTAMIN [Concomitant]
     Indication: PREMEDICATION
     Route: 048
  5. TEGRETOL [Concomitant]
     Indication: FACIAL SPASM
     Dosage: 100MG PER DAY
     Route: 048

REACTIONS (9)
  - ANAPHYLACTIC SHOCK [None]
  - ANAPHYLACTOID REACTION [None]
  - CHEST DISCOMFORT [None]
  - DYSPNOEA [None]
  - FAECAL INCONTINENCE [None]
  - HYPERHIDROSIS [None]
  - MALAISE [None]
  - OXYGEN SATURATION DECREASED [None]
  - WHEEZING [None]
